FAERS Safety Report 5371720-X (Version None)
Quarter: 2007Q2

REPORT INFORMATION
  Report Type: 
  Country: None (occurrence: None)
  Receive Date: 20070625
  Receipt Date: 20070615
  Transmission Date: 20071010
  Serious: Yes (Other)
  Sender: FDA-Public Use
  Company Number: B0475916A

PATIENT
  Age: 57 Year
  Sex: Male

DRUGS (1)
  1. VALACYCLOVIR [Suspect]
     Indication: HERPES ZOSTER
     Dosage: 1000 MG PER DAY ORAL
     Route: 048
     Dates: start: 20061027

REACTIONS (4)
  - DEAFNESS UNILATERAL [None]
  - DYSARTHRIA [None]
  - LOGORRHOEA [None]
  - SENSORY DISTURBANCE [None]
